FAERS Safety Report 5901749-1 (Version None)
Quarter: 2008Q3

REPORT INFORMATION
  Report Type: 
  Country: None (occurrence: None)
  Receive Date: 20080929
  Receipt Date: 20080922
  Transmission Date: 20090109
  Serious: Yes (Hospitalization)
  Sender: FDA-Public Use
  Company Number: DE-BRISTOL-MYERS SQUIBB COMPANY-14344618

PATIENT
  Age: 68 Year
  Sex: Male
  Weight: 56 kg

DRUGS (7)
  1. CETUXIMAB [Suspect]
     Indication: HEAD AND NECK CANCER
     Dosage: THERAPY STARTED ON 16-JUN-2008
     Route: 042
     Dates: start: 20080728, end: 20080728
  2. CISPLATIN [Suspect]
     Indication: HEAD AND NECK CANCER
     Dosage: THERAPY STARTED @ 75MG/M2, THEN DOSE REDUCED TO 80% IN CYCLE 2; 60MG/M2
     Route: 042
     Dates: start: 20080716, end: 20080716
  3. DOCETAXEL [Suspect]
     Indication: HEAD AND NECK CANCER
     Dosage: THERAPY START @ 75MG/M2, THEN DOSE REDUCED TO 80% IN CYCLE 2; 60MG/M2.
     Route: 042
     Dates: start: 20080716, end: 20080716
  4. FLUOROURACIL [Suspect]
     Indication: HEAD AND NECK CANCER
     Dosage: THERAPY START @ 750 MG/M2, THEN DOSE REDUCED TO 80% IN CYCLE 2;600 MG/M2
     Route: 042
     Dates: start: 20080720, end: 20080720
  5. SIMVASTATIN [Concomitant]
  6. NOVODIGAL [Concomitant]
  7. NEXIUM [Concomitant]

REACTIONS (1)
  - CONDITION AGGRAVATED [None]
